FAERS Safety Report 9420341 (Version 3)
Quarter: 2013Q3

REPORT INFORMATION
  Report Type: Spontaneous
  Country: GB (occurrence: None)
  Receive Date: 20130725
  Receipt Date: 20130808
  Transmission Date: 20140515
  Serious: Yes (Hospitalization)
  Sender: FDA-Public Use
  Company Number: AUR-APL-2013-06027

PATIENT
  Age: 61 Year
  Sex: Male

DRUGS (1)
  1. AMOXICILLIN+CLAVULANIC ACID [Suspect]
     Indication: PROPHYLAXIS
     Dosage: 3 IN 1 D
     Dates: start: 20130506, end: 20130512

REACTIONS (10)
  - Gastrooesophageal reflux disease [None]
  - Drug ineffective [None]
  - Diarrhoea [None]
  - Faeces discoloured [None]
  - Chromaturia [None]
  - Scleral discolouration [None]
  - Jaundice [None]
  - Fatigue [None]
  - Faeces pale [None]
  - Gallbladder disorder [None]
